FAERS Safety Report 6678080-2 (Version None)
Quarter: 2010Q2

REPORT INFORMATION
  Report Type: 
  Country: None (occurrence: None)
  Receive Date: 20100412
  Receipt Date: 20100406
  Transmission Date: 20101027
  Serious: Yes (Death, Hospitalization, Other)
  Sender: FDA-Public Use
  Company Number: US-AMGEN-QUU401259

PATIENT
  Sex: Male
  Weight: 103.5 kg

DRUGS (1)
  1. NPLATE [Suspect]
     Indication: IDIOPATHIC THROMBOCYTOPENIC PURPURA
     Dates: start: 20100204, end: 20100211

REACTIONS (3)
  - HERNIA [None]
  - IDIOPATHIC THROMBOCYTOPENIC PURPURA [None]
  - POST PROCEDURAL COMPLICATION [None]
